FAERS Safety Report 23407546 (Version 1)
Quarter: 2024Q1

REPORT INFORMATION
  Report Type: Spontaneous
  Country: US (occurrence: US)
  Receive Date: 20240117
  Receipt Date: 20240117
  Transmission Date: 20240410
  Serious: No
  Sender: FDA-Public Use
  Company Number: US-OPELLA-2024OHG000886

PATIENT
  Sex: Female

DRUGS (2)
  1. DULCOLAX STOOL SOFTENER [Suspect]
     Active Substance: DOCUSATE SODIUM
     Indication: Constipation
     Dosage: 3 TABLETS
     Route: 065
  2. DULCOLAX STOOL SOFTENER [Suspect]
     Active Substance: DOCUSATE SODIUM

REACTIONS (1)
  - Diarrhoea [Unknown]
